FAERS Safety Report 7353250-9 (Version None)
Quarter: 2011Q1

REPORT INFORMATION
  Report Type: 
  Country: None (occurrence: None)
  Receive Date: 20110315
  Receipt Date: 20110308
  Transmission Date: 20110831
  Serious: Yes (Hospitalization, Other)
  Sender: FDA-Public Use
  Company Number: BE-GENZYME-CLOF-1001346

PATIENT
  Sex: Female
  Weight: 74 kg

DRUGS (16)
  1. AMSACRINE [Suspect]
     Indication: ACUTE MYELOID LEUKAEMIA
     Dosage: 217 MG, UNK
     Route: 042
     Dates: start: 20101106, end: 20101108
  2. ESCITALOPRAM [Concomitant]
     Indication: PROPHYLAXIS
     Dosage: 10 MG, UNK
     Route: 048
     Dates: start: 20101205, end: 20110308
  3. CYTARABINE [Suspect]
     Indication: ACUTE MYELOID LEUKAEMIA
     Dosage: 3620 MG, UNK
     Route: 042
     Dates: start: 20101103, end: 20101108
  4. VORICONAZOLE [Concomitant]
     Indication: ANTIFUNGAL PROPHYLAXIS
     Dosage: 400 MG, UNK
     Route: 048
     Dates: start: 20110120, end: 20110308
  5. ACYCLOVIR [Concomitant]
     Indication: ANTIVIRAL PROPHYLAXIS
     Dosage: 1200 MG, UNK
     Route: 048
     Dates: start: 20101203, end: 20110308
  6. EVOLTRA [Suspect]
     Indication: ACUTE MYELOID LEUKAEMIA
     Dosage: 27.15 MG, QDX5
     Route: 042
     Dates: start: 20101103, end: 20101107
  7. RANITIDINE [Concomitant]
     Indication: PROPHYLAXIS
     Dosage: 300 MG, UNK
     Route: 048
     Dates: start: 20100927, end: 20101210
  8. ORGAMETRIL [Concomitant]
     Indication: PROPHYLAXIS
     Dosage: 5 MG, UNK
     Route: 048
     Dates: start: 20100927, end: 20101210
  9. ZOVIRAX [Concomitant]
     Indication: PROPHYLAXIS
     Dosage: 1200 MG, UNK
     Route: 048
     Dates: start: 20101203, end: 20101212
  10. ORGAMETRIL [Concomitant]
     Dosage: 2 MG, UNK
     Route: 048
     Dates: start: 20100927, end: 20110308
  11. PANTOPRAZOLE [Concomitant]
     Indication: PROPHYLAXIS AGAINST GASTROINTESTINAL ULCER
     Dosage: 20 MG, UNK
     Route: 048
     Dates: start: 20110205, end: 20110308
  12. ETOPOSIDE [Suspect]
     Indication: ACUTE MYELOID LEUKAEMIA
     Dosage: 180 MG, QDX5
     Route: 042
     Dates: start: 20110201, end: 20110205
  13. DIFLUCAN [Concomitant]
     Indication: PROPHYLAXIS
     Dosage: 200 MG, UNK
     Route: 048
     Dates: start: 20100927, end: 20101210
  14. MITOXANTRONE [Suspect]
     Indication: ACUTE MYELOID LEUKAEMIA
     Dosage: 18 MG, QDX5
     Route: 042
     Dates: start: 20110201, end: 20110205
  15. CIPROXINE [Concomitant]
     Indication: PYREXIA
     Dosage: 1 G, UNK
     Route: 048
     Dates: start: 20101202, end: 20101210
  16. CIPROXINE [Concomitant]
     Indication: INFECTION PROPHYLAXIS
     Dosage: 1000 MG, UNK
     Route: 048
     Dates: start: 20101202, end: 20110308

REACTIONS (3)
  - THROMBOCYTOPENIA [None]
  - BRONCHOPULMONARY ASPERGILLOSIS [None]
  - NEUTROPENIA [None]
